FAERS Safety Report 23113638 (Version 1)
Quarter: 2023Q4

REPORT INFORMATION
  Report Type: Spontaneous
  Country: US (occurrence: US)
  Receive Date: 20231027
  Receipt Date: 20231027
  Transmission Date: 20240109
  Serious: No
  Sender: FDA-Public Use
  Company Number: US-PADAGIS-2023PAD01511

PATIENT

DRUGS (1)
  1. TESTOSTERONE [Suspect]
     Active Substance: TESTOSTERONE
     Indication: Blood testosterone decreased
     Dosage: UNK, QD (ONCE A DAY ON PATIENT SHOULDERS)
     Route: 061
     Dates: start: 20231014

REACTIONS (1)
  - Nasal dryness [Unknown]

NARRATIVE: CASE EVENT DATE: 20231014
